FAERS Safety Report 5644298-0 (Version None)
Quarter: 2008Q1

REPORT INFORMATION
  Report Type: 
  Country: None (occurrence: None)
  Receive Date: 20080229
  Receipt Date: 20080227
  Transmission Date: 20080703
  Serious: Yes (Life-Threatening, Other)
  Sender: FDA-Public Use
  Company Number: PHEH2008US01846

PATIENT
  Age: 74 Year
  Sex: Female
  Weight: 122.45 kg

DRUGS (6)
  1. DICLOFENAC SODIUM [Concomitant]
     Dosage: 75 MG, BID
     Route: 048
  2. TRAVATAN [Concomitant]
     Dosage: 1 GTT, QHS
  3. PLAVIX [Concomitant]
     Dosage: 75 MG, QD
     Route: 048
  4. LIPITOR [Concomitant]
     Dosage: 20 MG, QHS
     Route: 048
  5. DIOVAN HCT [Concomitant]
  6. TEKTURNA [Suspect]
     Dosage: 300 MG, QD
     Route: 048
     Dates: start: 20080116, end: 20080211

REACTIONS (3)
  - CARDIOMYOPATHY [None]
  - DIARRHOEA [None]
  - SINUS TACHYCARDIA [None]
